FAERS Safety Report 16466147 (Version 2)
Quarter: 2019Q3

REPORT INFORMATION
  Report Type: Other
  Country: US (occurrence: US)
  Receive Date: 20190621
  Receipt Date: 20190924
  Transmission Date: 20191004
  Serious: No
  Sender: FDA-Public Use
  Company Number: US-ACORDA-ACO_159237_2019

PATIENT
  Age: 67 Year
  Sex: Female

DRUGS (5)
  1. SINEMET [Concomitant]
     Active Substance: CARBIDOPA\LEVODOPA
     Indication: PRODUCT USED FOR UNKNOWN INDICATION
     Dosage: 50 - 200 MG, BID
     Route: 065
  2. INBRIJA [Suspect]
     Active Substance: LEVODOPA
     Indication: DYSTONIA
  3. MULTIVITAMIN [Concomitant]
     Active Substance: VITAMINS
     Indication: PRODUCT USED FOR UNKNOWN INDICATION
     Dosage: UNK
     Route: 065
  4. INBRIJA [Suspect]
     Active Substance: LEVODOPA
     Indication: ON AND OFF PHENOMENON
  5. INBRIJA [Suspect]
     Active Substance: LEVODOPA
     Indication: PARKINSON^S DISEASE
     Dosage: 2 CAPSULES, TWICE DAILY
     Dates: start: 20190325

REACTIONS (6)
  - Sinusitis [Unknown]
  - Condition aggravated [Recovering/Resolving]
  - Feeling cold [Unknown]
  - Hypotension [Recovering/Resolving]
  - Dizziness [Unknown]
  - Product use in unapproved indication [Unknown]

NARRATIVE: CASE EVENT DATE: 20190608
